FAERS Safety Report 5910965-4 (Version None)
Quarter: 2008Q4

REPORT INFORMATION
  Report Type: 
  Country: None (occurrence: None)
  Receive Date: 20081003
  Receipt Date: 20081003
  Transmission Date: 20090506
  Serious: No
  Sender: FDA-Public Use
  Company Number: None

PATIENT

DRUGS (1)
  1. VICODIN [Suspect]

REACTIONS (2)
  - DRUG DISPENSING ERROR [None]
  - MALAISE [None]
